FAERS Safety Report 4476068-3 (Version None)
Quarter: 2004Q4

REPORT INFORMATION
  Report Type: 
  Country: None (occurrence: None)
  Receive Date: 20041012
  Receipt Date: 20040929
  Transmission Date: 20050328
  Serious: Yes (Other)
  Sender: FDA-Public Use
  Company Number: 2004046463

PATIENT
  Sex: Female

DRUGS (3)
  1. PENICILLIN G PROCAINE [Suspect]
     Indication: NASOPHARYNGITIS
  2. CEPHALEXIN [Suspect]
     Indication: ANTIBACTERIAL PROPHYLAXIS
     Dosage: 2 GRAM (500 MG, 4 IN 1 D)
     Dates: start: 20031105, end: 20031113
  3. ACETAMINOPHEN [Suspect]
     Indication: POST PROCEDURAL PAIN
     Dosage: 100 MG
     Dates: start: 20031105, end: 20031111

REACTIONS (30)
  - ASTHENIA [None]
  - CEREBROVASCULAR ACCIDENT [None]
  - CHILLS [None]
  - CHOLECYSTECTOMY [None]
  - CHOLELITHIASIS [None]
  - DIZZINESS [None]
  - DRUG HYPERSENSITIVITY [None]
  - DRUG INEFFECTIVE [None]
  - FALL [None]
  - FATIGUE [None]
  - FEELING ABNORMAL [None]
  - GAIT DISTURBANCE [None]
  - GINGIVITIS [None]
  - HYPERSOMNIA [None]
  - HYPOAESTHESIA ORAL [None]
  - INFLUENZA [None]
  - LIVER OPERATION [None]
  - MEDICAL DEVICE COMPLICATION [None]
  - MOBILITY DECREASED [None]
  - MUSCULOSKELETAL STIFFNESS [None]
  - NASOPHARYNGITIS [None]
  - NAUSEA [None]
  - NERVOUSNESS [None]
  - OCULAR ICTERUS [None]
  - PROCEDURAL COMPLICATION [None]
  - PYREXIA [None]
  - SKIN DISCOLOURATION [None]
  - SOMNOLENCE [None]
  - SWELLING FACE [None]
  - URTICARIA [None]
